FAERS Safety Report 8403364-7 (Version None)
Quarter: 2012Q2

REPORT INFORMATION
  Report Type: 
  Country: None (occurrence: None)
  Receive Date: 20120601
  Receipt Date: 20120525
  Transmission Date: 20120825
  Serious: Yes (Other)
  Sender: FDA-Public Use
  Company Number: US-PFIZER INC-2012127283

PATIENT
  Sex: Female

DRUGS (3)
  1. NEURONTIN [Suspect]
     Indication: CONVULSION
     Dosage: UNK
     Dates: end: 20120101
  2. ZOLOFT [Suspect]
     Indication: DEPRESSION
     Dosage: UNK
     Dates: start: 20100101, end: 20120101
  3. ZOLOFT [Suspect]
     Indication: PANIC ATTACK

REACTIONS (5)
  - NAUSEA [None]
  - VOMITING [None]
  - DIARRHOEA [None]
  - CONVULSION [None]
  - PANIC ATTACK [None]
